FAERS Safety Report 16671852 (Version 5)
Quarter: 2025Q3

REPORT INFORMATION
  Report Type: Spontaneous
  Country: EU (occurrence: EU)
  Receive Date: 20190806
  Receipt Date: 20250708
  Transmission Date: 20251020
  Serious: Yes (Death, Other)
  Sender: AUROBINDO
  Company Number: EU-AUROBINDO-AUR-APL-2019-045450

PATIENT
  Age: 65 Year
  Sex: Female

DRUGS (23)
  1. ZOLPIDEM [Suspect]
     Active Substance: ZOLPIDEM TARTRATE
     Indication: Anxiety
     Route: 065
  2. ZOLPIDEM [Suspect]
     Active Substance: ZOLPIDEM TARTRATE
     Indication: Pain management
  3. TRAMADOL [Suspect]
     Active Substance: TRAMADOL
     Indication: Pain management
     Route: 048
  4. FENTANYL [Suspect]
     Active Substance: FENTANYL
     Indication: Breakthrough pain
     Route: 045
  5. FENTANYL [Suspect]
     Active Substance: FENTANYL
     Route: 045
     Dates: start: 201808
  6. OXYCODONE HYDROCHLORIDE [Suspect]
     Active Substance: OXYCODONE HYDROCHLORIDE
     Indication: Pain management
     Dosage: 10 MILLIGRAM, TWO TIMES A DAY
     Route: 065
  7. ZOLEDRONIC ACID [Suspect]
     Active Substance: ZOLEDRONIC ACID
     Indication: Breast cancer metastatic
     Route: 042
  8. NALOXONE HYDROCHLORIDE\OXYCODONE HYDROCHLORIDE [Suspect]
     Active Substance: NALOXONE HYDROCHLORIDE\OXYCODONE HYDROCHLORIDE
     Indication: Pain management
     Route: 065
  9. MORPHINE SULFATE [Suspect]
     Active Substance: MORPHINE SULFATE
     Indication: Dyspnoea
     Route: 065
  10. MORPHINE SULFATE [Suspect]
     Active Substance: MORPHINE SULFATE
     Indication: Pain management
     Route: 065
  11. MORPHINE SULFATE [Suspect]
     Active Substance: MORPHINE SULFATE
     Dosage: 60 MILLIGRAM, ONCE A DAY (30 MG BID)
     Route: 065
  12. MORPHINE SULFATE [Suspect]
     Active Substance: MORPHINE SULFATE
     Dosage: 30 MILLIGRAM, ONCE A DAY
     Route: 065
  13. PAMIDRONIC ACID [Suspect]
     Active Substance: PAMIDRONIC ACID
     Indication: Breast cancer metastatic
     Route: 042
  14. TAMOXIFEN [Suspect]
     Active Substance: TAMOXIFEN
     Indication: Breast cancer metastatic
     Dosage: 20 MILLIGRAM, ONCE A DAY
     Route: 048
  15. HYDROXYZINE [Suspect]
     Active Substance: HYDROXYZINE HYDROCHLORIDE
     Indication: Anxiety
     Dosage: 25 MILLIGRAM, ONCE A DAY
     Route: 065
  16. MIDAZOLAM [Suspect]
     Active Substance: MIDAZOLAM
     Indication: Anxiety
     Route: 048
  17. ENOXAPARIN SODIUM [Suspect]
     Active Substance: ENOXAPARIN SODIUM
     Indication: Product used for unknown indication
     Dosage: 20 MILLIGRAM, ONCE A DAY
     Route: 065
  18. ACETAMINOPHEN [Concomitant]
     Active Substance: ACETAMINOPHEN
     Indication: Cancer pain
     Route: 065
  19. EPERISONE [Concomitant]
     Active Substance: EPERISONE
     Indication: Cancer pain
     Dosage: UNK, ONCE A DAY
     Route: 065
  20. NALOXONE [Concomitant]
     Active Substance: NALOXONE
     Indication: Product used for unknown indication
     Dosage: 5 MILLIGRAM, TWO TIMES A DAY
     Route: 065
  21. NALOXONE [Concomitant]
     Active Substance: NALOXONE
     Indication: Cancer pain
  22. LACTULOSE [Concomitant]
     Active Substance: LACTULOSE
     Indication: Product used for unknown indication
     Route: 065
  23. FENTANYL [Concomitant]
     Active Substance: FENTANYL
     Indication: Product used for unknown indication
     Route: 065
     Dates: start: 201808

REACTIONS (10)
  - Malignant neoplasm progression [Fatal]
  - Breast cancer metastatic [Fatal]
  - General physical health deterioration [Fatal]
  - Metastases to bone [Fatal]
  - Breakthrough pain [Fatal]
  - Constipation [Fatal]
  - Asthenia [Fatal]
  - Anxiety [Fatal]
  - Disturbance in attention [Fatal]
  - Sedation [Fatal]
